FAERS Safety Report 16222332 (Version 3)
Quarter: 2019Q2

REPORT INFORMATION
  Report Type: Spontaneous
  Country: FR (occurrence: FR)
  Receive Date: 20190422
  Receipt Date: 20190509
  Transmission Date: 20190711
  Serious: Yes (Death, Other)
  Sender: FDA-Public Use
  Company Number: FR-MYLANLABS-2019M1013586

PATIENT
  Age: 75 Year
  Sex: Male

DRUGS (8)
  1. PREDNISONE. [Suspect]
     Active Substance: PREDNISONE
     Dosage: UNK
     Route: 065
     Dates: start: 2013
  2. DEXAMETHASONE. [Suspect]
     Active Substance: DEXAMETHASONE
     Indication: CRYOGLOBULINAEMIA
     Dosage: UNK,AT EACH INFUSION OF BORTEZOMIB FOR FOUR CYCLES
     Route: 065
  3. BORTEZOMIB. [Suspect]
     Active Substance: BORTEZOMIB
     Dosage: 1.3 MG/M2, WEEKLY (DAYS 1, 8, 15 AND 22
     Route: 058
     Dates: start: 201411
  4. DEXAMETHASONE. [Concomitant]
     Active Substance: DEXAMETHASONE
     Dosage: 20 MG, UNK (EACH INFUSION FOR FOUR CYCLES)
  5. CYCLOPHOSPHAMIDE. [Suspect]
     Active Substance: CYCLOPHOSPHAMIDE
     Indication: CRYOGLOBULINAEMIA
     Dosage: 750 MILLIGRAM/SQ. METER, QW
     Route: 042
     Dates: start: 201404, end: 201409
  6. PREDNISONE. [Suspect]
     Active Substance: PREDNISONE
     Indication: CRYOGLOBULINAEMIA
     Dosage: 40 MG, DAILY (PROGRESSIVELY TAPERED)
     Route: 065
     Dates: start: 2013
  7. BORTEZOMIB. [Suspect]
     Active Substance: BORTEZOMIB
     Indication: CRYOGLOBULINAEMIA
     Dosage: 1.3 MG/M2, WEEKLY (DAYS 1, 8, 15 AND 22) PATIENT RECEIVED SIX COMPLETE CYCLES OF BORTEZOMIB THERAPY
     Route: 058
     Dates: start: 201411, end: 201605
  8. DEXAMETHASONE. [Concomitant]
     Active Substance: DEXAMETHASONE
     Indication: CRYOGLOBULINAEMIA
     Dosage: 10 MILLIGRAM, CYCLE,DURING ONE MORE CYCLE)

REACTIONS (10)
  - Emphysema [Unknown]
  - Toxicity to various agents [Unknown]
  - Condition aggravated [Unknown]
  - Malignant neoplasm progression [Fatal]
  - Off label use [Unknown]
  - Drug abuse [Unknown]
  - Intentional product misuse [Unknown]
  - Drug ineffective [Unknown]
  - Pneumonia [Unknown]
  - Overdose [Unknown]

NARRATIVE: CASE EVENT DATE: 2014
